FAERS Safety Report 6959693-7 (Version None)
Quarter: 2010Q3

REPORT INFORMATION
  Report Type: 
  Country: None (occurrence: None)
  Receive Date: 20100901
  Receipt Date: 20100827
  Transmission Date: 20110219
  Serious: Yes (Hospitalization)
  Sender: FDA-Public Use
  Company Number: US-BIOGENIDEC-2010BI027911

PATIENT
  Age: 73 Year
  Sex: Male

DRUGS (1)
  1. TYSABRI [Suspect]
     Indication: MULTIPLE SCLEROSIS
     Route: 042
     Dates: start: 20100309

REACTIONS (5)
  - ADVERSE REACTION [None]
  - DEHYDRATION [None]
  - MULTIPLE SCLEROSIS RELAPSE [None]
  - SEPSIS [None]
  - URINARY TRACT INFECTION [None]
